FAERS Safety Report 7048837-7 (Version None)
Quarter: 2010Q4

REPORT INFORMATION
  Report Type: 
  Country: None (occurrence: None)
  Receive Date: 20101018
  Receipt Date: 20101005
  Transmission Date: 20110411
  Serious: Yes (Other)
  Sender: FDA-Public Use
  Company Number: PHHY2010DE66359

PATIENT
  Sex: Female

DRUGS (2)
  1. RITALIN LA [Suspect]
     Dosage: 20 MG, UNK
     Route: 048
     Dates: start: 20100301, end: 20100401
  2. FLUOXETINE [Suspect]
     Dosage: UNK

REACTIONS (1)
  - DEPRESSION [None]
